FAERS Safety Report 9504796 (Version 3)
Quarter: 2014Q3

REPORT INFORMATION
  Report Type: Spontaneous
  Country: US (occurrence: US)
  Receive Date: 20130906
  Receipt Date: 20140801
  Transmission Date: 20150326
  Serious: Yes (Hospitalization, Disabling)
  Sender: FDA-Public Use
  Company Number: US-009507513-1309USA002259

PATIENT
  Sex: Female
  Weight: 106.58 kg

DRUGS (3)
  1. LODINE [Concomitant]
     Active Substance: ETODOLAC
  2. NUVARING [Suspect]
     Active Substance: ETHINYL ESTRADIOL\ETONOGESTREL
     Indication: CONTRACEPTION
     Dosage: UNK
     Route: 067
     Dates: start: 20100802, end: 20111120
  3. LORTAB [Concomitant]
     Active Substance: ACETAMINOPHEN\HYDROCODONE BITARTRATE

REACTIONS (3)
  - Ligament sprain [Unknown]
  - Deep vein thrombosis [Unknown]
  - Fall [Unknown]

NARRATIVE: CASE EVENT DATE: 201111
